FAERS Safety Report 8007378-0 (Version None)
Quarter: 2011Q4

REPORT INFORMATION
  Report Type: 
  Country: None (occurrence: None)
  Receive Date: 20111227
  Receipt Date: 20111220
  Transmission Date: 20120403
  Serious: Yes (Hospitalization, Other)
  Sender: FDA-Public Use
  Company Number: JP-PFIZER INC-2011201333

PATIENT
  Age: 80 Year
  Sex: Male
  Weight: 55 kg

DRUGS (9)
  1. ALLOPURINOL [Concomitant]
     Dosage: UNK
  2. ENTERONON R [Concomitant]
     Indication: PLEURISY
     Dosage: 1 G, 3X/DAY
     Route: 048
  3. LYRICA [Suspect]
     Indication: HYPOAESTHESIA
     Dosage: 75 MG DAILY
     Route: 048
     Dates: start: 20110715, end: 20110719
  4. NICERGOLINE [Concomitant]
     Dosage: UNK
  5. LYRICA [Suspect]
     Indication: NEURALGIA
     Dosage: 150 MG DAILY
     Route: 048
     Dates: start: 20110720, end: 20110725
  6. PLAVIX [Concomitant]
     Dosage: UNK
  7. ENTERONON [Concomitant]
     Dosage: UNK
  8. CLARITHROMYCIN [Concomitant]
     Indication: PLEURISY
     Dosage: 200 MG, 2X/DAY
     Route: 048
  9. CLEANAL [Concomitant]
     Indication: PLEURISY
     Dosage: 400 MG, 3X/DAY
     Route: 048

REACTIONS (2)
  - HAEMOLYTIC ANAEMIA [None]
  - PAIN [None]
